FAERS Safety Report 7300119-1 (Version None)
Quarter: 2011Q1

REPORT INFORMATION
  Report Type: 
  Country: None (occurrence: None)
  Receive Date: 20110217
  Receipt Date: 20110207
  Transmission Date: 20110831
  Serious: Yes (Hospitalization)
  Sender: FDA-Public Use
  Company Number: US-BIOGENIDEC-2010BI022424

PATIENT
  Sex: Male

DRUGS (1)
  1. TYSABRI [Suspect]
     Indication: MULTIPLE SCLEROSIS
     Route: 042
     Dates: start: 20100407

REACTIONS (7)
  - ASTHENIA [None]
  - URINARY TRACT INFECTION [None]
  - DIABETES MELLITUS [None]
  - STAPHYLOCOCCAL INFECTION [None]
  - CHROMATURIA [None]
  - WOUND [None]
  - FUNGAL INFECTION [None]
